FAERS Safety Report 12642090 (Version 1)
Quarter: 2016Q3

REPORT INFORMATION
  Report Type: Report from Study
  Country: US (occurrence: US)
  Receive Date: 20160810
  Receipt Date: 20160810
  Transmission Date: 20161109
  Serious: Yes (Death)
  Sender: FDA-Public Use
  Company Number: US-ABBVIE-16P-163-1698102-00

PATIENT
  Age: 88 Year
  Sex: Female

DRUGS (1)
  1. SYNTHROID [Suspect]
     Active Substance: LEVOTHYROXINE SODIUM
     Indication: PRODUCT USED FOR UNKNOWN INDICATION
     Route: 048
     Dates: end: 201607

REACTIONS (3)
  - Head injury [Fatal]
  - Intracranial aneurysm [Fatal]
  - Fall [Fatal]

NARRATIVE: CASE EVENT DATE: 201607
